FAERS Safety Report 24445294 (Version 2)
Quarter: 2025Q4

REPORT INFORMATION
  Report Type: Spontaneous
  Country: US (occurrence: US)
  Receive Date: 20241016
  Receipt Date: 20251119
  Transmission Date: 20260118
  Serious: No
  Sender: SANDOZ
  Company Number: US-002147023-NVSC2024US044694

PATIENT
  Age: 57 Year
  Sex: Female
  Weight: 54.42 kg

DRUGS (2)
  1. COMBIPATCH [Suspect]
     Active Substance: ESTRADIOL\NORETHINDRONE ACETATE
     Indication: Osteoporosis
     Dosage: 0.05/0.14 MG
     Route: 062
     Dates: start: 202311
  2. COMBIPATCH [Suspect]
     Active Substance: ESTRADIOL\NORETHINDRONE ACETATE
     Dosage: 0.05/0.14 MG
     Route: 062
     Dates: start: 202401

REACTIONS (3)
  - COVID-19 [Recovered/Resolved]
  - Vaginal haemorrhage [Recovered/Resolved]
  - Device breakage [Unknown]

NARRATIVE: CASE EVENT DATE: 20240101
